FAERS Safety Report 8605038-6 (Version None)
Quarter: 2012Q3

REPORT INFORMATION
  Report Type: 
  Country: None (occurrence: None)
  Receive Date: 20120820
  Receipt Date: 20120814
  Transmission Date: 20120928
  Serious: Yes (Other)
  Sender: FDA-Public Use
  Company Number: US-BAYER-2012-084505

PATIENT
  Age: 29 Year
  Sex: Female
  Weight: 52.154 kg

DRUGS (1)
  1. ASPIRIN [Suspect]
     Indication: HEADACHE
     Dosage: 1 TAB, 500 MG AS NEEDED
     Route: 048
     Dates: start: 20110101

REACTIONS (1)
  - SINUSITIS [None]
